FAERS Safety Report 16918266 (Version 1)
Quarter: 2019Q4

REPORT INFORMATION
  Report Type: Spontaneous
  Country: US (occurrence: US)
  Receive Date: 20191015
  Receipt Date: 20191015
  Transmission Date: 20200122
  Serious: Yes (Death, Other)
  Sender: FDA-Public Use
  Company Number: US-AUROBINDO-AUR-APL-2019-066551

PATIENT
  Age: 61 Year
  Sex: Male

DRUGS (1)
  1. KHAPZORY [Suspect]
     Active Substance: LEVOLEUCOVORIN DISODIUM
     Indication: COLON CANCER
     Dosage: 348 MILLIGRAM EVERY 14 DAYS
     Route: 065

REACTIONS (1)
  - Death [Fatal]

NARRATIVE: CASE EVENT DATE: 20190530
